FAERS Safety Report 8467875-0 (Version None)
Quarter: 2012Q2

REPORT INFORMATION
  Report Type: 
  Country: None (occurrence: None)
  Receive Date: 20120626
  Receipt Date: 20120613
  Transmission Date: 20120825
  Serious: No
  Sender: FDA-Public Use
  Company Number: US-ASTRAZENECA-2012SE22235

PATIENT
  Age: 52 Year
  Sex: Female

DRUGS (3)
  1. NEXIUM [Suspect]
     Route: 048
  2. NEXIUM [Suspect]
     Route: 048
  3. ZALFAXIN [Concomitant]

REACTIONS (4)
  - VOMITING [None]
  - DYSPEPSIA [None]
  - INTENTIONAL DRUG MISUSE [None]
  - HEPATIC CIRRHOSIS [None]
